FAERS Safety Report 5980199-6 (Version None)
Quarter: 2008Q4

REPORT INFORMATION
  Report Type: 
  Country: None (occurrence: None)
  Receive Date: 20081202
  Receipt Date: 20081202
  Transmission Date: 20090506
  Serious: Yes (Other)
  Sender: FDA-Public Use
  Company Number: None

PATIENT
  Age: 50 Year
  Sex: Female
  Weight: 92.9874 kg

DRUGS (1)
  1. CLARITHROMYCIN EXTENDED RELEASE [Suspect]
     Indication: BRONCHITIS
     Dosage: 500 MG X 2 DAILY PO
     Route: 048
     Dates: start: 20081121, end: 20081123

REACTIONS (4)
  - HALLUCINATION [None]
  - INSOMNIA [None]
  - MOOD SWINGS [None]
  - VERTIGO [None]
